FAERS Safety Report 4359218-9 (Version None)
Quarter: 2004Q2

REPORT INFORMATION
  Report Type: 
  Country: None (occurrence: None)
  Receive Date: 20040512
  Receipt Date: 20040423
  Transmission Date: 20050107
  Serious: Yes (Hospitalization)
  Sender: FDA-Public Use
  Company Number: US_030897315

PATIENT
  Age: 12 Year
  Sex: Male
  Weight: 35 kg

DRUGS (2)
  1. ATOMOXETINE HYDROCHLORIDE [Suspect]
     Indication: ATTENTION DEFICIT/HYPERACTIVITY DISORDER
     Dosage: 40 MG/QAM DAY
     Dates: start: 20021029
  2. CLONIDINE HCL [Concomitant]

REACTIONS (10)
  - CONFUSIONAL STATE [None]
  - ELECTROENCEPHALOGRAM ABNORMAL [None]
  - EYE PAIN [None]
  - FALL [None]
  - FEELING HOT [None]
  - HEAD INJURY [None]
  - MIGRAINE [None]
  - PARAESTHESIA [None]
  - SOMNOLENCE [None]
  - VOMITING [None]
